FAERS Safety Report 8945824 (Version 1)
Quarter: 2012Q4

REPORT INFORMATION
  Report Type: 
  Country: US (occurrence: US)
  Receive Date: 20121205
  Receipt Date: 20121205
  Transmission Date: 20130627
  Serious: Yes (Death)
  Sender: FDA-Public Use
  Company Number: PHEH2012US023685

PATIENT
  Sex: Female

DRUGS (2)
  1. MYFORTIC [Suspect]
     Indication: RENAL TRANSPLANT
     Dosage: 720 mg, BID
     Route: 048
  2. ZORTRESS [Concomitant]
     Dosage: 3 DF, BID

REACTIONS (1)
  - Death [Fatal]
